FAERS Safety Report 18567248 (Version 2)
Quarter: 2021Q1

REPORT INFORMATION
  Report Type: Spontaneous
  Country: US (occurrence: US)
  Receive Date: 20201201
  Receipt Date: 20210204
  Transmission Date: 20210419
  Serious: No
  Sender: FDA-Public Use
  Company Number: US-VIFOR (INTERNATIONAL) INC.-VIT-2020-10961

PATIENT
  Age: 88 Year
  Sex: Female
  Weight: 77.63 kg

DRUGS (8)
  1. IRBESARTAN. [Concomitant]
     Active Substance: IRBESARTAN
     Dosage: 1.5 DOSAGE FORM
  2. IRBESARTAN. [Concomitant]
     Active Substance: IRBESARTAN
     Dates: start: 20201026
  3. SODIUM [Concomitant]
     Active Substance: SODIUM
  4. VELTASSA [Suspect]
     Active Substance: PATIROMER
     Indication: BLOOD POTASSIUM INCREASED
     Route: 048
     Dates: start: 20201020, end: 2020
  5. AMLODIPINE [Concomitant]
     Active Substance: AMLODIPINE BESYLATE
     Indication: BLOOD PRESSURE MEASUREMENT
  6. LOKELMA [Concomitant]
     Active Substance: SODIUM ZIRCONIUM CYCLOSILICATE
  7. VELTASSA [Suspect]
     Active Substance: PATIROMER
     Route: 048
     Dates: start: 2020, end: 2020
  8. OMEPRAZOLE. [Concomitant]
     Active Substance: OMEPRAZOLE
     Indication: GASTROOESOPHAGEAL REFLUX DISEASE

REACTIONS (11)
  - Joint injury [Unknown]
  - Drug hypersensitivity [Unknown]
  - Muscle spasms [Recovering/Resolving]
  - Blood potassium increased [Recovered/Resolved]
  - Musculoskeletal disorder [Recovered/Resolved]
  - Fall [Unknown]
  - Pain in extremity [Recovering/Resolving]
  - Headache [Recovered/Resolved]
  - Joint swelling [Recovering/Resolving]
  - Inappropriate schedule of product administration [Unknown]
  - Constipation [Recovered/Resolved]

NARRATIVE: CASE EVENT DATE: 2020
